FAERS Safety Report 5582538-7 (Version None)
Quarter: 2008Q1

REPORT INFORMATION
  Report Type: 
  Country: None (occurrence: None)
  Receive Date: 20080105
  Receipt Date: 20071221
  Transmission Date: 20080703
  Serious: Yes (Hospitalization)
  Sender: FDA-Public Use
  Company Number: FR-BOEHRINGER INGELHEIM PHARMACEUTICALS, INC.-2008-BP-00138YA

PATIENT
  Sex: Male

DRUGS (8)
  1. TAMSULOSIN HCL [Suspect]
     Indication: BENIGN PROSTATIC HYPERPLASIA
     Route: 048
     Dates: end: 20071124
  2. CLOPIDOGREL [Suspect]
     Indication: CAROTID ENDARTERECTOMY
     Route: 048
     Dates: start: 20071003, end: 20071124
  3. METFORMIN HCL [Suspect]
     Indication: TYPE 2 DIABETES MELLITUS
     Route: 048
     Dates: end: 20071124
  4. AMARYL [Suspect]
     Indication: TYPE 2 DIABETES MELLITUS
     Route: 048
     Dates: end: 20071124
  5. TILDIEM [Suspect]
     Indication: ARRHYTHMIA
     Route: 048
     Dates: end: 20071124
  6. SEROPRAM [Suspect]
     Route: 048
     Dates: end: 20071124
  7. IMOVANE [Suspect]
     Route: 048
     Dates: end: 20071124
  8. KARDEGIC [Suspect]
     Route: 048
     Dates: start: 20071003

REACTIONS (2)
  - AGRANULOCYTOSIS [None]
  - PYREXIA [None]
